FAERS Safety Report 7088864-7 (Version None)
Quarter: 2010Q4

REPORT INFORMATION
  Report Type: 
  Country: None (occurrence: None)
  Receive Date: 20101108
  Receipt Date: 20101029
  Transmission Date: 20110411
  Serious: Yes (Other)
  Sender: FDA-Public Use
  Company Number: US-PFIZER INC-2010138247

PATIENT
  Sex: Female

DRUGS (3)
  1. LYRICA [Suspect]
     Indication: FIBROMYALGIA
     Dosage: UNK
     Route: 048
     Dates: start: 20100101
  2. LYRICA [Suspect]
     Indication: NEURALGIA
  3. PLAVIX [Concomitant]
     Indication: ARTERIAL OCCLUSIVE DISEASE
     Dosage: UNK

REACTIONS (3)
  - MENTAL IMPAIRMENT [None]
  - TONGUE DISORDER [None]
  - TREMOR [None]
